FAERS Safety Report 7747547-8 (Version None)
Quarter: 2011Q3

REPORT INFORMATION
  Report Type: 
  Country: None (occurrence: None)
  Receive Date: 20110913
  Receipt Date: 20110909
  Transmission Date: 20111222
  Serious: No
  Sender: FDA-Public Use
  Company Number: US-PFIZER INC-2011178937

PATIENT
  Sex: Female
  Weight: 51.247 kg

DRUGS (3)
  1. BUPROPION HYDROCHLORIDE [Concomitant]
     Dosage: 200 MG, 2X/DAY
  2. SULFASALAZINE [Suspect]
     Indication: COLITIS
     Dosage: UNK
     Route: 048
     Dates: start: 20110601
  3. SULFASALAZINE [Suspect]
     Indication: COLITIS ULCERATIVE

REACTIONS (6)
  - MUSCULOSKELETAL DISCOMFORT [None]
  - FATIGUE [None]
  - WEIGHT DECREASED [None]
  - APPETITE DISORDER [None]
  - HAEMOGLOBIN DECREASED [None]
  - PARAESTHESIA [None]
